FAERS Safety Report 15670510 (Version 1)
Quarter: 2018Q4

REPORT INFORMATION
  Report Type: Spontaneous
  Country: US (occurrence: US)
  Receive Date: 20181129
  Receipt Date: 20181129
  Transmission Date: 20190205
  Serious: No
  Sender: FDA-Public Use
  Company Number: US-009507513-1811USA011556

PATIENT
  Age: 20 Month
  Sex: Male

DRUGS (12)
  1. SINGULAIR [Suspect]
     Active Substance: MONTELUKAST SODIUM
     Indication: ECZEMA
  2. CORTICOSTEROIDS (UNSPECIFIED) [Concomitant]
     Active Substance: UNSPECIFIED INGREDIENT
     Indication: ECZEMA
     Route: 061
  3. FEXOFENADINE HYDROCHLORIDE. [Concomitant]
     Active Substance: FEXOFENADINE HYDROCHLORIDE
     Indication: ECZEMA
  4. TACROLIMUS. [Concomitant]
     Active Substance: TACROLIMUS
     Indication: EPIDERMOLYSIS BULLOSA
  5. DERMATOLOGIC (UNSPECIFIED) [Concomitant]
     Active Substance: UNSPECIFIED INGREDIENT
     Indication: EPIDERMOLYSIS BULLOSA
  6. SINGULAIR [Suspect]
     Active Substance: MONTELUKAST SODIUM
     Indication: EPIDERMOLYSIS BULLOSA
  7. CORTICOSTEROIDS (UNSPECIFIED) [Concomitant]
     Active Substance: UNSPECIFIED INGREDIENT
     Indication: EPIDERMOLYSIS BULLOSA
  8. TACROLIMUS. [Concomitant]
     Active Substance: TACROLIMUS
     Indication: ECZEMA
     Route: 061
  9. DERMATOLOGIC (UNSPECIFIED) [Concomitant]
     Active Substance: UNSPECIFIED INGREDIENT
     Indication: ECZEMA
  10. COUGH, COLD, AND FLU THERAPIES (UNSPECIFIED) [Concomitant]
     Active Substance: UNSPECIFIED INGREDIENT
     Indication: ECZEMA
     Route: 048
  11. COUGH, COLD, AND FLU THERAPIES (UNSPECIFIED) [Concomitant]
     Active Substance: UNSPECIFIED INGREDIENT
     Indication: EPIDERMOLYSIS BULLOSA
  12. FEXOFENADINE HYDROCHLORIDE. [Concomitant]
     Active Substance: FEXOFENADINE HYDROCHLORIDE
     Indication: EPIDERMOLYSIS BULLOSA

REACTIONS (1)
  - Product use in unapproved indication [Unknown]
